FAERS Safety Report 11323636 (Version 4)
Quarter: 2015Q4

REPORT INFORMATION
  Report Type: Report from Study
  Country: JP (occurrence: JP)
  Receive Date: 20150730
  Receipt Date: 20151130
  Transmission Date: 20160304
  Serious: Yes (Other)
  Sender: FDA-Public Use
  Company Number: JP-GLAXOSMITHKLINE INC.-JP2015JPN102901

PATIENT
  Age: 52 Year
  Sex: Male

DRUGS (27)
  1. BAKTAR [Suspect]
     Active Substance: SULFAMETHOXAZOLE\TRIMETHOPRIM
     Route: 048
  2. ETHAMBUTOL [Suspect]
     Active Substance: ETHAMBUTOL HYDROCHLORIDE
     Route: 048
  3. INTEBAN [Concomitant]
     Active Substance: INDOMETHACIN
     Indication: EOSINOPHILIC PUSTULOSIS
     Dosage: 1 %, BID
     Dates: start: 20140704
  4. NORVIR [Suspect]
     Active Substance: RITONAVIR
     Indication: HIV INFECTION
     Dosage: 100 MG, UNK
     Route: 048
     Dates: start: 20110121, end: 20150115
  5. ZITHROMAC [Suspect]
     Active Substance: AZITHROMYCIN DIHYDRATE
     Dosage: 500 MG, QD
     Route: 065
     Dates: start: 20111228, end: 20130123
  6. SULFAMETHOXAZOLE-TRIMETHOPRIM (SMZ) [Suspect]
     Active Substance: SULFAMETHOXAZOLE\TRIMETHOPRIM
     Route: 065
  7. ANTEBATE OINTMENT [Concomitant]
     Indication: EOSINOPHILIC PUSTULOSIS
     Dosage: 0.05 %, BID
     Dates: start: 20140829
  8. DOLUTEGRAVIR [Suspect]
     Active Substance: DOLUTEGRAVIR
     Indication: HIV INFECTION
     Dosage: 50 MG, UNK
     Route: 048
     Dates: start: 20150116
  9. PREZISTA [Suspect]
     Active Substance: DARUNAVIR ETHANOLATE
     Indication: HIV INFECTION
     Dosage: 800 MG, QD
     Route: 048
     Dates: start: 20110121, end: 20150115
  10. KINDAVATE OINTMENT [Concomitant]
     Indication: EOSINOPHILIC PUSTULOSIS
     Dosage: 0.05 %, BID
     Dates: start: 20140704
  11. FOSAMAC [Suspect]
     Active Substance: ALENDRONATE SODIUM
     Route: 048
  12. BEZATOL [Suspect]
     Active Substance: BEZAFIBRATE
     Dosage: 900 MG, BID
     Route: 048
     Dates: start: 20110109, end: 20110218
  13. BEZATOL [Suspect]
     Active Substance: BEZAFIBRATE
     Dosage: 450 MG, BID
     Route: 048
     Dates: start: 20110219, end: 20110914
  14. VALIXA [Suspect]
     Active Substance: VALGANCICLOVIR
     Route: 048
  15. ZITHROMAC [Suspect]
     Active Substance: AZITHROMYCIN DIHYDRATE
     Dosage: 600 MG, QD
     Route: 065
     Dates: start: 20110305, end: 20111227
  16. BEZATOL [Suspect]
     Active Substance: BEZAFIBRATE
     Dosage: 450 MG, BID
     Route: 048
     Dates: start: 20111019, end: 20111125
  17. ZITHROMAC [Suspect]
     Active Substance: AZITHROMYCIN DIHYDRATE
     Dosage: 1200 MG, UNK
     Route: 065
     Dates: start: 20110107, end: 20110304
  18. MYSLEE [Concomitant]
     Active Substance: ZOLPIDEM TARTRATE
     Indication: INSOMNIA
     Dosage: 5 MG, QD
     Dates: start: 20140401
  19. ALLERMIST NASAL SPRAY [Concomitant]
     Indication: SINUSITIS
     Dosage: 27.5 ?G, QD
     Dates: start: 20150313
  20. MUCODYNE [Concomitant]
     Active Substance: CARBOCYSTEINE
     Indication: SINUSITIS
     Dosage: 500 MG, TID
     Dates: start: 20150313
  21. EPZICOM [Suspect]
     Active Substance: ABACAVIR SULFATE\LAMIVUDINE
     Indication: HIV INFECTION
     Dosage: 1 DF, UNK
     Route: 048
     Dates: start: 20120111
  22. BEZATOL [Suspect]
     Active Substance: BEZAFIBRATE
     Dosage: 450 MG, BID
     Route: 048
     Dates: start: 20111209, end: 20111228
  23. BEZATOL [Suspect]
     Active Substance: BEZAFIBRATE
     Dosage: 450 MG, BID
     Route: 048
     Dates: start: 20120118, end: 20120222
  24. LIPIDIL [Suspect]
     Active Substance: FENOFIBRATE
     Dosage: UNK
     Route: 048
     Dates: start: 201306
  25. EPADEL S [Concomitant]
     Active Substance: ICOSAPENT ETHYL
     Indication: DYSLIPIDAEMIA
     Dosage: 600 MG, TID
     Dates: start: 20140620
  26. BEZATOL [Suspect]
     Active Substance: BEZAFIBRATE
     Dosage: 900 MG, BID
     Route: 048
     Dates: start: 20110929, end: 20111004
  27. NEUZYM [Concomitant]
     Active Substance: LYSOZYME HYDROCHLORIDE
     Indication: SINUSITIS
     Dosage: 90 MG, TID
     Dates: start: 20150313

REACTIONS (7)
  - Renal impairment [Not Recovered/Not Resolved]
  - Hyperlipidaemia [Not Recovered/Not Resolved]
  - Diabetes mellitus [Not Recovered/Not Resolved]
  - Eosinophilic pustular folliculitis [Not Recovered/Not Resolved]
  - Hyperuricaemia [Not Recovered/Not Resolved]
  - Sinusitis [Not Recovered/Not Resolved]
  - Diabetic neuropathy [Not Recovered/Not Resolved]

NARRATIVE: CASE EVENT DATE: 20111216
